FAERS Safety Report 16114152 (Version 1)
Quarter: 2019Q1

REPORT INFORMATION
  Report Type: Spontaneous
  Country: US (occurrence: US)
  Receive Date: 20190325
  Receipt Date: 20190325
  Transmission Date: 20190418
  Serious: No
  Sender: FDA-Public Use
  Company Number: US-ALLERGAN-1854094US

PATIENT
  Age: 74 Year
  Sex: Female
  Weight: 58.96 kg

DRUGS (3)
  1. UNSPECIFIED DIABETIC MEDICATION [Concomitant]
     Indication: DIABETES MELLITUS
     Dosage: UNK
  2. LATISSE [Suspect]
     Active Substance: BIMATOPROST
     Indication: GROWTH OF EYELASHES
     Dosage: UNK UNK, QHS
     Route: 061
     Dates: start: 201811, end: 201811
  3. EYELINER [Concomitant]
     Dosage: UNK

REACTIONS (3)
  - Eyelid irritation [Recovered/Resolved]
  - Wrong technique in product usage process [Unknown]
  - Erythema of eyelid [Recovered/Resolved]

NARRATIVE: CASE EVENT DATE: 201811
